FAERS Safety Report 19261102 (Version 38)
Quarter: 2024Q2

REPORT INFORMATION
  Report Type: Report from Study
  Country: US (occurrence: US)
  Receive Date: 20210515
  Receipt Date: 20240625
  Transmission Date: 20240716
  Serious: Yes (Hospitalization, Other)
  Sender: FDA-Public Use
  Company Number: US-TAKEDA-US202033805

PATIENT
  Age: 48 Year
  Sex: Male
  Weight: 154 kg

DRUGS (9)
  1. LANADELUMAB [Suspect]
     Active Substance: LANADELUMAB
     Indication: Immune system disorder
     Dosage: 300 MILLIGRAM, 1/WEEK
     Route: 058
     Dates: start: 20190116
  2. LANADELUMAB [Suspect]
     Active Substance: LANADELUMAB
     Indication: Hereditary angioedema
     Dosage: 300 MILLIGRAM, Q2WEEKS
     Route: 058
     Dates: start: 20190117
  3. LANADELUMAB [Suspect]
     Active Substance: LANADELUMAB
     Dosage: 300 MILLIGRAM, 1/WEEK
     Route: 058
     Dates: start: 20190118
  4. LANADELUMAB [Suspect]
     Active Substance: LANADELUMAB
     Dosage: 300 MILLIGRAM, 1/WEEK
     Route: 058
     Dates: start: 201901
  5. LANADELUMAB [Suspect]
     Active Substance: LANADELUMAB
     Dosage: 300 MILLIGRAM, 1/WEEK
     Route: 058
     Dates: start: 20190717
  6. LANADELUMAB [Suspect]
     Active Substance: LANADELUMAB
     Dosage: 300 MILLIGRAM, Q2WEEKS
     Route: 058
     Dates: start: 20190719
  7. LANADELUMAB [Suspect]
     Active Substance: LANADELUMAB
     Dosage: 300 MILLIGRAM, 1/WEEK
     Route: 058
     Dates: start: 201907
  8. LANADELUMAB [Suspect]
     Active Substance: LANADELUMAB
     Dosage: UNK, 1/WEEK
     Route: 065
  9. LANADELUMAB [Suspect]
     Active Substance: LANADELUMAB
     Dosage: 300 MILLIGRAM, 1/WEEK
     Route: 058

REACTIONS (24)
  - Osteomyelitis [Unknown]
  - Sepsis [Unknown]
  - Renal failure [Unknown]
  - Pneumonia [Unknown]
  - Ankle fracture [Unknown]
  - Infection [Unknown]
  - Hypoventilation [Unknown]
  - Viral infection [Unknown]
  - Cataract [Unknown]
  - Extradural abscess [Unknown]
  - Spinal cord infection [Unknown]
  - Hereditary angioedema [Recovered/Resolved]
  - Arthritis [Unknown]
  - Weight decreased [Unknown]
  - Weight increased [Unknown]
  - Blood potassium decreased [Unknown]
  - Malaise [Unknown]
  - Fatigue [Unknown]
  - Abdominal pain [Unknown]
  - Stress [Unknown]
  - Insurance issue [Unknown]
  - Drug ineffective [Unknown]
  - Product dose omission issue [Unknown]
  - Product use issue [Unknown]

NARRATIVE: CASE EVENT DATE: 20210218
